FAERS Safety Report 7505924-4 (Version None)
Quarter: 2011Q2

REPORT INFORMATION
  Report Type: 
  Country: None (occurrence: None)
  Receive Date: 20110526
  Receipt Date: 20110520
  Transmission Date: 20111010
  Serious: Yes (Hospitalization)
  Sender: FDA-Public Use
  Company Number: US-B.I. PHARMACEUTICALS,INC./RIDGEFIELD-2011-BP-09088BP

PATIENT
  Age: 80 Year
  Sex: Female
  Weight: 60.8 kg

DRUGS (3)
  1. PRADAXA [Suspect]
     Indication: ATRIAL FIBRILLATION
     Dosage: 300 MG
     Dates: end: 20110310
  2. PRADAXA [Suspect]
     Dosage: 150 MG
  3. ASPIRIN [Concomitant]
     Dosage: 81 MG

REACTIONS (4)
  - PULMONARY EMBOLISM [None]
  - DEEP VEIN THROMBOSIS [None]
  - CREATININE RENAL CLEARANCE DECREASED [None]
  - GASTROINTESTINAL HAEMORRHAGE [None]
